FAERS Safety Report 16119986 (Version 7)
Quarter: 2019Q4

REPORT INFORMATION
  Report Type: Report from Study
  Country: US (occurrence: US)
  Receive Date: 20190326
  Receipt Date: 20191125
  Transmission Date: 20200122
  Serious: Yes (Life-Threatening, Other)
  Sender: FDA-Public Use
  Company Number: PHHY2018US201269

PATIENT
  Age: 5 Year
  Sex: Male

DRUGS (3)
  1. CYCLOPHOSPHAMIDE. [Concomitant]
     Active Substance: CYCLOPHOSPHAMIDE
     Indication: CHEMOTHERAPY
     Route: 065
  2. FLUDARABINE [Concomitant]
     Active Substance: FLUDARABINE PHOSPHATE
     Indication: CHEMOTHERAPY
     Route: 065
  3. KYMRIAH [Suspect]
     Active Substance: TISAGENLECLEUCEL
     Indication: B-CELL TYPE ACUTE LEUKAEMIA
     Dosage: ONCE/SINGLE
     Route: 041
     Dates: start: 2018

REACTIONS (17)
  - Malignant neoplasm progression [Unknown]
  - White blood cell count decreased [Unknown]
  - Gastrointestinal infection [Unknown]
  - B-cell type acute leukaemia [Unknown]
  - Motor dysfunction [Unknown]
  - Haematocrit decreased [Unknown]
  - Neurotoxicity [Recovered/Resolved]
  - Pyrexia [Unknown]
  - Platelet count decreased [Unknown]
  - Headache [Unknown]
  - Hemiparesis [Unknown]
  - Paraparesis [Unknown]
  - Clostridium difficile infection [Unknown]
  - Cytokine release syndrome [Recovered/Resolved]
  - Neutrophil count decreased [Unknown]
  - Lymphocyte count decreased [Unknown]
  - Haemoglobin decreased [Unknown]
